FAERS Safety Report 7105506-2 (Version None)
Quarter: 2010Q4

REPORT INFORMATION
  Report Type: 
  Country: None (occurrence: None)
  Receive Date: 20101116
  Receipt Date: 20101101
  Transmission Date: 20110411
  Serious: Yes (Other)
  Sender: FDA-Public Use
  Company Number: US-ROCHE-718926

PATIENT
  Sex: Male
  Weight: 90.7 kg

DRUGS (4)
  1. ACCUTANE [Suspect]
     Route: 065
     Dates: start: 20000613
  2. ACCUTANE [Suspect]
     Dosage: 40 MG DAILY-ODD DAYS, 80 MG DAILY-EVEN DAYS.
     Route: 065
     Dates: start: 20000807
  3. ACCUTANE [Suspect]
     Route: 065
     Dates: start: 20000830
  4. ACCUTANE [Suspect]
     Dosage: DOSAGE REDUCED
     Route: 065
     Dates: start: 20001207

REACTIONS (7)
  - CHEILITIS [None]
  - CHOLANGITIS SCLEROSING [None]
  - COLITIS ULCERATIVE [None]
  - CROHN'S DISEASE [None]
  - GASTROINTESTINAL INJURY [None]
  - INFLAMMATORY BOWEL DISEASE [None]
  - RASH ERYTHEMATOUS [None]
